FAERS Safety Report 16309091 (Version 1)
Quarter: 2019Q2

REPORT INFORMATION
  Report Type: Spontaneous
  Country: US (occurrence: US)
  Receive Date: 20190514
  Receipt Date: 20190514
  Transmission Date: 20190711
  Serious: No
  Sender: FDA-Public Use
  Company Number: US-PFIZER INC-2019203595

PATIENT
  Age: 82 Year
  Sex: Female
  Weight: 54.4 kg

DRUGS (1)
  1. OGEN [Suspect]
     Active Substance: ESTROPIPATE
     Dosage: UNK

REACTIONS (1)
  - Drug ineffective [Unknown]
